FAERS Safety Report 8787181 (Version 1)
Quarter: 2012Q4

REPORT INFORMATION
  Report Type: 
  Country: US (occurrence: US)
  Receive Date: 20120914
  Receipt Date: 20120914
  Transmission Date: 20130627
  Serious: Yes (Other)
  Sender: FDA-Public Use
  Company Number: US-ELI_LILLY_AND_COMPANY-US201209001202

PATIENT
  Age: 61 Year
  Sex: Male

DRUGS (6)
  1. CYMBALTA [Suspect]
     Dosage: 60 mg, qd
     Dates: start: 201107
  2. HYOSCYAMINE [Concomitant]
  3. ZOFRAN [Concomitant]
  4. FLONASE [Concomitant]
  5. AMBIEN [Concomitant]
  6. BACLOFEN [Concomitant]

REACTIONS (1)
  - Gastrectomy [Unknown]
